FAERS Safety Report 6015813-2 (Version None)
Quarter: 2008Q4

REPORT INFORMATION
  Report Type: 
  Country: None (occurrence: None)
  Receive Date: 20081222
  Receipt Date: 20081218
  Transmission Date: 20090506
  Serious: Yes (Hospitalization)
  Sender: FDA-Public Use
  Company Number: A0660033A

PATIENT
  Age: 47 Year
  Sex: Female
  Weight: 60.9 kg

DRUGS (6)
  1. IMITREX [Suspect]
     Indication: MIGRAINE
     Dosage: 100MG AS REQUIRED
     Route: 048
     Dates: start: 20050611, end: 20050611
  2. LAMICTAL [Concomitant]
  3. PRILOSEC [Concomitant]
  4. TRAZODONE [Concomitant]
  5. SINGULAIR [Concomitant]
  6. NITROGLYCERIN [Concomitant]

REACTIONS (16)
  - ANXIETY [None]
  - ARTERIOSPASM CORONARY [None]
  - CATHETER SITE RELATED REACTION [None]
  - CHEST DISCOMFORT [None]
  - CHEST PAIN [None]
  - CHILLS [None]
  - CYSTITIS [None]
  - DYSPNOEA [None]
  - HYPERHIDROSIS [None]
  - KIDNEY INFECTION [None]
  - LABILE HYPERTENSION [None]
  - MYOCARDIAL INFARCTION [None]
  - MYOCARDIAL ISCHAEMIA [None]
  - NAUSEA [None]
  - PYREXIA [None]
  - VOMITING [None]
